FAERS Safety Report 5236629-0 (Version None)
Quarter: 2007Q1

REPORT INFORMATION
  Report Type: 
  Country: None (occurrence: None)
  Receive Date: 20070208
  Receipt Date: 20070206
  Transmission Date: 20070707
  Serious: Yes (Other)
  Sender: FDA-Public Use
  Company Number: DAV-AE-MTX-07-004

PATIENT
  Sex: Male

DRUGS (5)
  1. RHEUMATREX [Suspect]
     Indication: POLYMYALGIA RHEUMATICA
     Dosage: 17.5MG - 1XW - ORAL
     Route: 048
     Dates: start: 20030101, end: 20070101
  2. FOLIC ACID [Concomitant]
  3. CALCIUM [Concomitant]
  4. FOSAMAX [Concomitant]
  5. PREDNISONE [Concomitant]

REACTIONS (4)
  - ASTHENIA [None]
  - CARPAL TUNNEL SYNDROME [None]
  - MUSCLE ATROPHY [None]
  - NEOPLASM SKIN [None]
